FAERS Safety Report 13112043 (Version 2)
Quarter: 2017Q1

REPORT INFORMATION
  Report Type: Spontaneous
  Country: US (occurrence: US)
  Receive Date: 20170113
  Receipt Date: 20170126
  Transmission Date: 20170428
  Serious: Yes (Hospitalization)
  Sender: FDA-Public Use
  Company Number: GB-KYOWAKIRIN-2016BKK107791

PATIENT

DRUGS (1)
  1. SANCUSO [Suspect]
     Active Substance: GRANISETRON
     Indication: PROPHYLAXIS OF NAUSEA AND VOMITING
     Dosage: 1 DF, UNK
     Route: 062
     Dates: start: 201612

REACTIONS (5)
  - Incorrect drug administration duration [Unknown]
  - Inappropriate schedule of drug administration [Unknown]
  - Diarrhoea [Recovered/Resolved]
  - Vomiting [Recovered/Resolved]
  - Nausea [Recovered/Resolved]

NARRATIVE: CASE EVENT DATE: 201612
